FAERS Safety Report 9900943 (Version 1)
Quarter: 2014Q1

REPORT INFORMATION
  Report Type: Report from Study
  Country: US (occurrence: US)
  Receive Date: 20140217
  Receipt Date: 20140217
  Transmission Date: 20141002
  Serious: No
  Sender: FDA-Public Use
  Company Number: US-ABBVIE-13P-163-1124629-00

PATIENT
  Sex: Male
  Weight: 78.54 kg

DRUGS (2)
  1. SIMCOR 500/40 [Suspect]
     Indication: LOW DENSITY LIPOPROTEIN INCREASED
     Dosage: 500/40MG TAKING AFTER EVENING MEAL
     Dates: start: 201302
  2. ASPIRIN [Concomitant]
     Indication: PRODUCT USED FOR UNKNOWN INDICATION
     Dosage: EVERY NIGHT

REACTIONS (2)
  - Miliaria [Recovered/Resolved]
  - Miliaria [Recovered/Resolved]
